FAERS Safety Report 8930146 (Version 1)
Quarter: 2012Q4

REPORT INFORMATION
  Report Type: 
  Country: GB (occurrence: GB)
  Receive Date: 20121128
  Receipt Date: 20121128
  Transmission Date: 20130627
  Serious: Yes (Other)
  Sender: FDA-Public Use
  Company Number: GB-WATSON-2012-20209

PATIENT
  Age: 46 Year
  Sex: Male

DRUGS (2)
  1. CITALOPRAM HYDROBROMIDE (UNKNOWN) [Suspect]
     Indication: DEPRESSION
     Dosage: initially 10 mg daily increased for past 10 months to 20 mg daily. Taken for 1 year in total
     Route: 065
  2. ZOPICLONE [Suspect]
     Indication: PRODUCT USED FOR UNKNOWN INDICATION
     Dosage: Dose not stated  Strength: 7.5 mg
     Route: 065
     Dates: start: 201210

REACTIONS (2)
  - Mania [Unknown]
  - Unevaluable event [Unknown]
